FAERS Safety Report 6062617-0 (Version None)
Quarter: 2009Q1

REPORT INFORMATION
  Report Type: 
  Country: None (occurrence: None)
  Receive Date: 20090203
  Receipt Date: 20090128
  Transmission Date: 20090719
  Serious: Yes (Hospitalization)
  Sender: FDA-Public Use
  Company Number: AU-BAYER-200910835GPV

PATIENT
  Age: 81 Year
  Sex: Male
  Weight: 75 kg

DRUGS (17)
  1. FLUDARABINE PHOSPHATE [Suspect]
     Indication: CHRONIC LYMPHOCYTIC LEUKAEMIA
     Route: 048
     Dates: start: 20081218, end: 20081222
  2. RITUXIMAB [Suspect]
     Indication: CHRONIC LYMPHOCYTIC LEUKAEMIA
     Route: 042
     Dates: start: 20081218, end: 20081218
  3. CYCLOPHOSPHAMIDE [Suspect]
     Indication: CHRONIC LYMPHOCYTIC LEUKAEMIA
     Route: 048
     Dates: start: 20081218, end: 20081222
  4. MIXTARD HUMAN 70/30 [Concomitant]
  5. METFORMIN [Concomitant]
  6. DIAPRIDE [Concomitant]
  7. IRBESARTAN [Concomitant]
  8. COVERSYL [Concomitant]
  9. AMLODIPINE [Concomitant]
  10. LAMIVUDINE [Concomitant]
     Dates: start: 20081107
  11. ALLOPURINOL [Concomitant]
     Dates: start: 20081117
  12. COLOXYL WITH SENNA [Concomitant]
  13. MAXOLON [Concomitant]
     Dates: start: 20081201
  14. PANTOPRAZOLE [Concomitant]
     Dates: start: 20081201
  15. PHENERGAN HCL [Concomitant]
     Route: 042
     Dates: start: 20081218
  16. ACETAMINOPHEN [Concomitant]
     Route: 048
     Dates: start: 20081218
  17. ONDASETRON [Concomitant]

REACTIONS (5)
  - ANAEMIA [None]
  - HYPERCALCAEMIA [None]
  - NEUTROPENIA [None]
  - PYREXIA [None]
  - RENAL FAILURE [None]
